FAERS Safety Report 25601653 (Version 1)
Quarter: 2025Q3

REPORT INFORMATION
  Report Type: Spontaneous
  Country: US (occurrence: US)
  Receive Date: 20250724
  Receipt Date: 20250724
  Transmission Date: 20251021
  Serious: No
  Sender: BAYER HEALTHCARE PHARMACEUTICALS INC.
  Company Number: US-BAYER-2025A096836

PATIENT
  Age: 30 Year
  Sex: Female

DRUGS (3)
  1. ESTRADIOL [Suspect]
     Active Substance: ESTRADIOL
     Indication: Menstrual cycle management
  2. RELUGOLIX [Concomitant]
     Active Substance: RELUGOLIX
     Indication: Menstrual cycle management
  3. NORETHINDRONE [Concomitant]
     Active Substance: NORETHINDRONE
     Indication: Menstrual cycle management

REACTIONS (2)
  - Product prescribing issue [None]
  - Product use in unapproved indication [None]
